FAERS Safety Report 7414361-2 (Version None)
Quarter: 2011Q2

REPORT INFORMATION
  Report Type: 
  Country: None (occurrence: None)
  Receive Date: 20110407
  Receipt Date: 20110328
  Transmission Date: 20111010
  Serious: Yes (Hospitalization)
  Sender: FDA-Public Use
  Company Number: DAV-AE-MTX-11-012

PATIENT
  Age: 26 Year
  Sex: Female

DRUGS (4)
  1. DOXORUBICIN [Concomitant]
  2. METHOTREXATE [Suspect]
     Indication: ACUTE LYMPHOCYTIC LEUKAEMIA
  3. VINCRISTINE [Concomitant]
  4. PREDNISOLONE [Concomitant]

REACTIONS (1)
  - BREAST CANCER [None]
